FAERS Safety Report 16266249 (Version 1)
Quarter: 2019Q2

REPORT INFORMATION
  Report Type: Spontaneous
  Country: CN (occurrence: CN)
  Receive Date: 20190502
  Receipt Date: 20190502
  Transmission Date: 20190711
  Serious: No
  Sender: FDA-Public Use
  Company Number: CN-B. BRAUN MEDICAL INC.-2066556

PATIENT
  Age: 41 Year
  Sex: Female
  Weight: 64 kg

DRUGS (1)
  1. HESPAN [Suspect]
     Active Substance: HETASTARCH\SODIUM CHLORIDE
     Route: 042
     Dates: start: 20190321

REACTIONS (1)
  - Pruritus [Recovered/Resolved]

NARRATIVE: CASE EVENT DATE: 20190321
